FAERS Safety Report 17661074 (Version 1)
Quarter: 2020Q2

REPORT INFORMATION
  Report Type: Spontaneous
  Country: US (occurrence: US)
  Receive Date: 20200412
  Receipt Date: 20200412
  Transmission Date: 20200713
  Serious: Yes (Other)
  Sender: FDA-Public Use
  Company Number: None

PATIENT
  Age: 66 Year
  Sex: Female
  Weight: 67.5 kg

DRUGS (15)
  1. ALFALFA [Concomitant]
     Active Substance: ALFALFA
  2. BIOTIN [Concomitant]
     Active Substance: BIOTIN
  3. ZINC. [Concomitant]
     Active Substance: ZINC
  4. HYDROCHLOROTHIAZIDE. [Concomitant]
     Active Substance: HYDROCHLOROTHIAZIDE
  5. OMEGA 3 [Concomitant]
     Active Substance: OMEGA-3 FATTY ACIDS
  6. ENALAPRIL [Concomitant]
     Active Substance: ENALAPRIL
  7. LACTOBACILLUS ACIDOPHILUS [Concomitant]
     Active Substance: LACTOBACILLUS ACIDOPHILUS
  8. EVENING PRIMEROSE OIL [Concomitant]
  9. ECHINACEA W/GOLDENSEAL [Concomitant]
  10. VITAMINS [Concomitant]
     Active Substance: VITAMINS
  11. GINKO BILOBA [Concomitant]
     Active Substance: GINKGO
  12. ATORVASTATIN CALCIUM TAB 10 MG (GENERIC EQUIVALANT OF LIPITOR) [Suspect]
     Active Substance: ATORVASTATIN CALCIUM
     Indication: BLOOD CHOLESTEROL
     Dosage: ?          QUANTITY:1 TABLET(S);?
     Route: 048
     Dates: start: 20180101
  13. CALCIUM W/D [Concomitant]
  14. LYSINE [Concomitant]
     Active Substance: LYSINE
  15. VITAMIN B COMPLEX [Concomitant]
     Active Substance: CYANOCOBALAMIN\DEXPANTHENOL\NIACINAMIDE\PYRIDOXINE HYDROCHLORIDE\RIBOFLAVIN 5^-PHOSPHATE SODIUM\THIAMINE HYDROCHLORIDE\VITAMIN B COMPLEX

REACTIONS (5)
  - Intentional product use issue [None]
  - Arthralgia [None]
  - Myalgia [None]
  - Movement disorder [None]
  - Loss of personal independence in daily activities [None]
